FAERS Safety Report 14414394 (Version 5)
Quarter: 2018Q2

REPORT INFORMATION
  Report Type: Report from Study
  Country: US (occurrence: US)
  Receive Date: 20180120
  Receipt Date: 20180612
  Transmission Date: 20180711
  Serious: Yes (Hospitalization)
  Sender: FDA-Public Use
  Company Number: US-ROCHE-2058749

PATIENT
  Age: 59 Year
  Sex: Male
  Weight: 137.3 kg

DRUGS (32)
  1. POLYETHYLENE GLYCOL [Concomitant]
     Active Substance: POLYETHYLENE GLYCOLS
     Indication: CONSTIPATION
     Route: 065
     Dates: start: 20171211, end: 20171212
  2. GEMCITABINE [Suspect]
     Active Substance: GEMCITABINE\GEMCITABINE HYDROCHLORIDE
     Indication: CANCER SURGERY
     Dosage: DATE OF MOST RECENT DOSE OF GEMCITABINE PRIOR TO AE ONSET ON 04/APR/2017 WITH 1800 MG DOSE
     Route: 042
     Dates: start: 20170124
  3. BUPROPION. [Concomitant]
     Active Substance: BUPROPION
     Indication: DEPRESSION
     Route: 065
     Dates: start: 20160614
  4. ACETAMINOPHEN W/OXYCODONE [Concomitant]
     Active Substance: ACETAMINOPHEN\OXYCODONE HYDROCHLORIDE
     Indication: PAIN
     Route: 065
     Dates: start: 20170104
  5. SODIUM CHLORIDE. [Concomitant]
     Active Substance: SODIUM CHLORIDE
     Indication: ABDOMINAL PAIN
     Route: 065
     Dates: start: 20171210, end: 20171210
  6. CYANOCOBALAMIN. [Concomitant]
     Active Substance: CYANOCOBALAMIN
     Route: 065
     Dates: start: 20161109
  7. FERROUS GLUCONATE [Concomitant]
     Active Substance: FERROUS GLUCONATE
     Indication: ANAEMIA
     Route: 065
     Dates: start: 20170307
  8. DEXTROSE. [Concomitant]
     Active Substance: DEXTROSE
     Indication: ABDOMINAL PAIN
     Route: 065
     Dates: start: 20171210, end: 20171210
  9. CIPROFLOXACIN. [Concomitant]
     Active Substance: CIPROFLOXACIN
     Indication: ABDOMINAL PAIN
     Route: 065
     Dates: start: 20171211, end: 20171212
  10. ENOXAPARIN [Concomitant]
     Active Substance: ENOXAPARIN
     Indication: PNEUMONIA
     Route: 065
     Dates: start: 20171126, end: 20171207
  11. ATEZOLIZUMAB. [Suspect]
     Active Substance: ATEZOLIZUMAB
     Indication: CANCER SURGERY
     Dosage: DATE OF MOST RECENT DOSE OF ATEZOLIZUMAB PRIOR TO AE ONSET ON 31/OCT/2017
     Route: 042
     Dates: start: 20170425
  12. CISPLATIN. [Suspect]
     Active Substance: CISPLATIN
     Indication: CANCER SURGERY
     Dosage: DATE OF MOST RECENT DOSE OF CISPLATIN PRIOR TO AE ONSET ON 28/MAR/2017 WITH 125 MG
     Route: 042
     Dates: start: 20170124
  13. FOLIC ACID. [Concomitant]
     Active Substance: FOLIC ACID
     Route: 065
     Dates: start: 20161109
  14. CEFEPIME [Concomitant]
     Active Substance: CEFEPIME HYDROCHLORIDE
     Route: 065
     Dates: start: 20180105, end: 20180110
  15. ONDANSETRON [Concomitant]
     Active Substance: ONDANSETRON
     Indication: NAUSEA
     Route: 065
     Dates: start: 20171201, end: 20171207
  16. METRONIDAZOLE. [Concomitant]
     Active Substance: METRONIDAZOLE
     Indication: ABDOMINAL PAIN
     Route: 065
     Dates: start: 20171211, end: 20171212
  17. MELOXICAM. [Concomitant]
     Active Substance: MELOXICAM
     Indication: ARTHRALGIA
     Route: 065
     Dates: start: 20160614
  18. PROTONIX (OMEPRAZOLE) [Concomitant]
     Active Substance: OMEPRAZOLE
     Indication: NAUSEA
     Route: 065
     Dates: start: 20171010
  19. FLUCONAZOLE. [Concomitant]
     Active Substance: FLUCONAZOLE
     Indication: INFECTION PROPHYLAXIS
     Route: 065
     Dates: start: 20171011
  20. AMINO ACIDS [Concomitant]
     Active Substance: AMINO ACIDS
     Indication: PNEUMONIA
     Dosage: 5 %
     Route: 065
     Dates: start: 20171203, end: 20171206
  21. ONDANSETRON [Concomitant]
     Active Substance: ONDANSETRON
     Route: 065
     Dates: start: 20171210, end: 20171210
  22. FENTANYL. [Concomitant]
     Active Substance: FENTANYL
     Indication: ABDOMINAL PAIN
     Route: 065
     Dates: start: 20171210, end: 20171210
  23. INFLUENZA VACCINE [Concomitant]
     Active Substance: INFLUENZA VIRUS VACCINE
     Route: 065
     Dates: start: 20171212, end: 20171212
  24. FERROUS SULFATE. [Concomitant]
     Active Substance: FERROUS SULFATE
  25. DEXTROSE. [Concomitant]
     Active Substance: DEXTROSE
     Indication: PNEUMONIA
     Dosage: 15 %
     Route: 065
     Dates: start: 20171203, end: 20171206
  26. CIPROFLOXACIN. [Concomitant]
     Active Substance: CIPROFLOXACIN
     Indication: INTESTINAL OBSTRUCTION
     Route: 065
     Dates: start: 20171205, end: 20171207
  27. HYDROMORPHONE [Concomitant]
     Active Substance: HYDROMORPHONE
     Indication: ABDOMINAL PAIN
     Route: 065
     Dates: start: 20171210, end: 20171210
  28. PANTOPRAZOLE [Concomitant]
     Active Substance: PANTOPRAZOLE
  29. FLUDROCORTISONE [Concomitant]
     Active Substance: FLUDROCORTISONE
     Indication: PNEUMONIA
     Route: 065
     Dates: start: 20171126, end: 20171207
  30. PREDNISONE. [Concomitant]
     Active Substance: PREDNISONE
  31. FLUDROCORTISONE [Concomitant]
     Active Substance: FLUDROCORTISONE
     Route: 065
  32. ENOXAPARIN [Concomitant]
     Active Substance: ENOXAPARIN
     Indication: ABDOMINAL PAIN
     Route: 065
     Dates: start: 20171210, end: 20171212

REACTIONS (1)
  - Secondary adrenocortical insufficiency [Recovered/Resolved]

NARRATIVE: CASE EVENT DATE: 20180105
